FAERS Safety Report 14229416 (Version 1)
Quarter: 2017Q4

REPORT INFORMATION
  Report Type: Spontaneous
  Country: US (occurrence: US)
  Receive Date: 20171128
  Receipt Date: 20171128
  Transmission Date: 20180321
  Serious: Yes (Hospitalization)
  Sender: FDA-Public Use
  Company Number: US-AXELLIA-001203

PATIENT
  Age: 67 Year
  Sex: Male

DRUGS (2)
  1. VANCOMYCIN [Suspect]
     Active Substance: VANCOMYCIN
     Indication: PNEUMONIA
     Route: 042
  2. PIPERACILLIN/TAZOBACTAM [Concomitant]
     Indication: PNEUMONIA

REACTIONS (3)
  - Dermatitis [Recovered/Resolved]
  - Catheter site cellulitis [Recovered/Resolved]
  - Extravasation [None]
